FAERS Safety Report 6014671-X (Version None)
Quarter: 2008Q4

REPORT INFORMATION
  Report Type: 
  Country: None (occurrence: None)
  Receive Date: 20081219
  Receipt Date: 20081212
  Transmission Date: 20090506
  Serious: Yes (Hospitalization)
  Sender: FDA-Public Use
  Company Number: PL-TYCO HEALTHCARE/MALLINCKRODT-T200802105

PATIENT

DRUGS (1)
  1. OPTIRAY 300 [Suspect]
     Dosage: 75 ML, SINGLE
     Route: 042
     Dates: start: 20080930, end: 20080930

REACTIONS (7)
  - ABDOMINAL PAIN UPPER [None]
  - ERYTHEMA [None]
  - EYELID OEDEMA [None]
  - OEDEMA MOUTH [None]
  - PRURITUS [None]
  - THROAT IRRITATION [None]
  - VOMITING [None]
